FAERS Safety Report 6041969-1 (Version None)
Quarter: 2009Q1

REPORT INFORMATION
  Report Type: 
  Country: None (occurrence: None)
  Receive Date: 20090116
  Receipt Date: 20090107
  Transmission Date: 20090719
  Serious: No
  Sender: FDA-Public Use
  Company Number: US-PFIZER INC-2008065375

PATIENT
  Sex: Female

DRUGS (5)
  1. DEPO-SUBQ PROVERA 104 [Suspect]
     Indication: CONTRACEPTION
     Dosage: 104 MG, UNK
     Route: 058
     Dates: start: 20080529, end: 20080529
  2. DEPO-SUBQ PROVERA 104 [Suspect]
     Dosage: 104 MG, UNK
     Route: 058
     Dates: start: 20080804
  3. REMICADE [Concomitant]
  4. PROZAC [Concomitant]
  5. ABILIFY [Concomitant]

REACTIONS (3)
  - AMENORRHOEA [None]
  - EXPIRED DRUG ADMINISTERED [None]
  - WEIGHT INCREASED [None]
